FAERS Safety Report 8594867-3 (Version None)
Quarter: 2012Q3

REPORT INFORMATION
  Report Type: 
  Country: None (occurrence: None)
  Receive Date: 20120815
  Receipt Date: 20120808
  Transmission Date: 20120928
  Serious: Yes (Hospitalization)
  Sender: FDA-Public Use
  Company Number: IT-ASTELLAS-2012US006875

PATIENT
  Sex: Male

DRUGS (2)
  1. TAXOTERE [Suspect]
     Indication: LUNG CANCER METASTATIC
     Dosage: 140 MG, DAILY, CYCLIC
     Route: 042
     Dates: start: 20120720, end: 20120720
  2. TARCEVA [Suspect]
     Indication: LUNG CANCER METASTATIC
     Dosage: 150 MG, UID/QD
     Route: 048
     Dates: start: 20110510, end: 20120807

REACTIONS (2)
  - PSEUDOMONAS INFECTION [None]
  - FEBRILE NEUTROPENIA [None]
